FAERS Safety Report 17688799 (Version 1)
Quarter: 2020Q2

REPORT INFORMATION
  Report Type: Spontaneous
  Country: US (occurrence: US)
  Receive Date: 20200421
  Receipt Date: 20200421
  Transmission Date: 20200714
  Serious: Yes (Other)
  Sender: FDA-Public Use
  Company Number: NVSC2020US105803

PATIENT
  Age: 60 Year
  Sex: Female

DRUGS (3)
  1. METHYLPREDNISOLONE. [Concomitant]
     Active Substance: METHYLPREDNISOLONE
     Indication: BLINDNESS
     Dosage: 1000 MG
     Route: 042
  2. CARBOPLATIN. [Suspect]
     Active Substance: CARBOPLATIN
     Indication: SQUAMOUS CELL CARCINOMA OF HEAD AND NECK
     Dosage: UNK UNK, QW
     Route: 065
  3. NIVOLUMAB [Suspect]
     Active Substance: NIVOLUMAB
     Indication: NASAL SINUS CANCER
     Dosage: 3 MG/KG, QW
     Route: 065

REACTIONS (6)
  - Squamous cell carcinoma of head and neck [Unknown]
  - Malignant neoplasm progression [Unknown]
  - Erythema [Unknown]
  - Eye pain [Unknown]
  - Swelling [Unknown]
  - Product use in unapproved indication [Unknown]
